FAERS Safety Report 10570779 (Version 1)
Quarter: 2014Q4

REPORT INFORMATION
  Report Type: Spontaneous
  Country: US (occurrence: None)
  Receive Date: 20141106
  Receipt Date: 20141106
  Transmission Date: 20150529
  Serious: Yes (Death)
  Sender: FDA-Public Use
  Company Number: None

PATIENT
  Age: 67 Year
  Sex: Male
  Weight: 99.3 kg

DRUGS (1)
  1. XARELTO [Suspect]
     Active Substance: RIVAROXABAN
     Indication: ARRHYTHMIA
     Route: 048

REACTIONS (6)
  - Subdural haematoma [None]
  - Epistaxis [None]
  - Ear haemorrhage [None]
  - Brain herniation [None]
  - Mental status changes [None]
  - Rectal haemorrhage [None]

NARRATIVE: CASE EVENT DATE: 20141026
